FAERS Safety Report 5800732-4 (Version None)
Quarter: 2008Q3

REPORT INFORMATION
  Report Type: 
  Country: None (occurrence: None)
  Receive Date: 20080703
  Receipt Date: 20080701
  Transmission Date: 20090109
  Serious: Yes (Life-Threatening, Hospitalization)
  Sender: FDA-Public Use
  Company Number: FR-BRISTOL-MYERS SQUIBB COMPANY-14205439

PATIENT
  Age: 63 Year
  Sex: Female
  Weight: 89 kg

DRUGS (4)
  1. IXABEPILONE [Suspect]
     Indication: BREAST CANCER
     Dosage: CUMULATIVE DOSE 78MG
     Route: 042
     Dates: start: 20080515, end: 20080515
  2. CYCLOPHOSPHAMIDE [Suspect]
     Indication: BREAST CANCER
     Dosage: 13MAR08 - 24APR08, CUMULATIVE DOSE 2790MG
     Route: 042
     Dates: start: 20080424, end: 20080424
  3. FLUOROURACIL [Suspect]
     Indication: BREAST CANCER
     Dosage: 13MAR08-24APR08, CUMULATIVE DOSE 2970MG
     Route: 042
     Dates: start: 20080424, end: 20080424
  4. EPIRUBICIN [Suspect]
     Indication: BREAST CANCER
     Dosage: 13MAR08 - 24APR08, CUMULATIVE DOSE 594MG
     Route: 042
     Dates: start: 20080424, end: 20080424

REACTIONS (4)
  - FEBRILE BONE MARROW APLASIA [None]
  - RENAL FAILURE [None]
  - RESPIRATORY DISTRESS [None]
  - SEPTIC SHOCK [None]
